FAERS Safety Report 25465157 (Version 2)
Quarter: 2025Q2

REPORT INFORMATION
  Report Type: Report from Study
  Country: CA (occurrence: CA)
  Receive Date: 20250622
  Receipt Date: 20250627
  Transmission Date: 20250717
  Serious: Yes (Hospitalization)
  Sender: ABBVIE
  Company Number: CA-ABBVIE-6250284

PATIENT
  Age: 34 Year
  Sex: Male

DRUGS (2)
  1. SKYRIZI [Suspect]
     Active Substance: RISANKIZUMAB-RZAA
     Indication: Crohn^s disease
     Dosage: FORM STRENGTH: 360MG/2.4ML
     Route: 058
  2. SKYRIZI [Suspect]
     Active Substance: RISANKIZUMAB-RZAA
     Route: 058

REACTIONS (13)
  - Crohn^s disease [Recovered/Resolved]
  - Campylobacter infection [Recovered/Resolved]
  - Nausea [Recovered/Resolved]
  - Dehydration [Recovered/Resolved]
  - Presyncope [Recovered/Resolved]
  - Mouth ulceration [Recovered/Resolved]
  - Eczema [Recovered/Resolved]
  - Escherichia infection [Unknown]
  - Vertigo [Unknown]
  - Fatigue [Unknown]
  - Defaecation urgency [Unknown]
  - Gastrointestinal inflammation [Unknown]
  - Weight loss poor [Unknown]

NARRATIVE: CASE EVENT DATE: 20250101
